FAERS Safety Report 8401683-1 (Version None)
Quarter: 2012Q2

REPORT INFORMATION
  Report Type: 
  Country: None (occurrence: None)
  Receive Date: 20120529
  Receipt Date: 20120518
  Transmission Date: 20120825
  Serious: Yes (Death)
  Sender: FDA-Public Use
  Company Number: CO-JNJFOC-20120407930

PATIENT
  Age: 60 Year
  Sex: Male

DRUGS (1)
  1. DACOGEN [Suspect]
     Indication: ANAEMIA MACROCYTIC
     Dosage: 40 MG, INTRAVENOUS
     Route: 042
     Dates: start: 20110523

REACTIONS (4)
  - OFF LABEL USE [None]
  - BLOOD CREATININE INCREASED [None]
  - AORTIC VALVE INCOMPETENCE [None]
  - PULMONARY HYPERTENSION [None]
